FAERS Safety Report 8990540 (Version 2)
Quarter: 2013Q1

REPORT INFORMATION
  Report Type: Spontaneous
  Country: JP (occurrence: JP)
  Receive Date: 20121228
  Receipt Date: 20130326
  Transmission Date: 20140127
  Serious: Yes (Death, Hospitalization)
  Sender: FDA-Public Use
  Company Number: JP-BRISTOL-MYERS SQUIBB COMPANY-17245143

PATIENT
  Age: 64 Year
  Sex: Female

DRUGS (1)
  1. ORENCIA FOR INJ 250 MG/VIAL [Suspect]
     Indication: RHEUMATOID ARTHRITIS
     Route: 041

REACTIONS (3)
  - Pneumonia [Fatal]
  - Sepsis [Unknown]
  - Disseminated intravascular coagulation [Unknown]
